FAERS Safety Report 9289900 (Version 3)
Quarter: 2014Q1

REPORT INFORMATION
  Report Type: Report from Study
  Country: JP (occurrence: JP)
  Receive Date: 20130515
  Receipt Date: 20140303
  Transmission Date: 20141002
  Serious: Yes (Hospitalization)
  Sender: FDA-Public Use
  Company Number: JP-009507513-1305JPN006777

PATIENT
  Age: 33 Year
  Sex: Female

DRUGS (3)
  1. ISENTRESS TABLETS 400MG [Suspect]
     Indication: EXPOSURE TO COMMUNICABLE DISEASE
     Dosage: 400 MG, BID
     Route: 048
     Dates: start: 20120924, end: 20121018
  2. EPIVIR [Suspect]
     Indication: EXPOSURE TO COMMUNICABLE DISEASE
     Dosage: 150 MG, BID
     Route: 048
     Dates: start: 20120924, end: 20121018
  3. ZIAGEN [Suspect]
     Indication: EXPOSURE TO COMMUNICABLE DISEASE
     Dosage: 300 MG, BID
     Route: 048
     Dates: start: 20120924, end: 20121018

REACTIONS (1)
  - Hepatic function abnormal [Recovered/Resolved]
